FAERS Safety Report 18150658 (Version 1)
Quarter: 2020Q3

REPORT INFORMATION
  Report Type: Spontaneous
  Country: US (occurrence: US)
  Receive Date: 20200814
  Receipt Date: 20200814
  Transmission Date: 20201103
  Serious: Yes (Other)
  Sender: FDA-Public Use
  Company Number: None

PATIENT
  Age: 50 Year
  Sex: Male
  Weight: 105 kg

DRUGS (2)
  1. VORICONAZOLE. [Suspect]
     Active Substance: VORICONAZOLE
     Indication: CANDIDA INFECTION
     Route: 048
     Dates: start: 20200226, end: 20200813
  2. VORICONAZOLE. [Suspect]
     Active Substance: VORICONAZOLE
     Indication: HISTOPLASMOSIS
     Route: 048
     Dates: start: 20200226, end: 20200813

REACTIONS (3)
  - Erythema [None]
  - Pseudoporphyria [None]
  - Blister [None]

NARRATIVE: CASE EVENT DATE: 20200728
